FAERS Safety Report 8811937 (Version 1)
Quarter: 2012Q4

REPORT INFORMATION
  Report Type: Spontaneous
  Country: US (occurrence: None)
  Receive Date: 20120926
  Receipt Date: 20120926
  Transmission Date: 20130627
  Serious: No
  Sender: FDA-Public Use
  Company Number: None

PATIENT
  Age: 60 Year
  Sex: Male

DRUGS (3)
  1. PEGASYS [Suspect]
     Indication: HEPATITIS
     Route: 030
     Dates: start: 20120622
  2. RIBAVIRIN [Suspect]
     Indication: HEPATITIS
     Dosage: 200mg tab, 600mg qam and qpm, po
     Route: 048
     Dates: start: 20120622
  3. INCIVEK [Concomitant]

REACTIONS (2)
  - Tremor [None]
  - Vision blurred [None]
